FAERS Safety Report 17236740 (Version 3)
Quarter: 2022Q1

REPORT INFORMATION
  Report Type: Report from Study
  Country: FR (occurrence: FR)
  Receive Date: 20200106
  Receipt Date: 20220105
  Transmission Date: 20220423
  Serious: Yes (Death, Other)
  Sender: FDA-Public Use
  Company Number: FR-PFIZER INC-2020000075

PATIENT
  Age: 71 Year

DRUGS (4)
  1. DOXORUBICIN HYDROCHLORIDE [Suspect]
     Active Substance: DOXORUBICIN HYDROCHLORIDE
     Indication: Hodgkin^s disease
     Dosage: 40 MG/M2, EVERY 3 WEEKS (EVERY 21 DAYS, D1, }CYCLE 1)
  2. PREDNISONE [Suspect]
     Active Substance: PREDNISONE
     Indication: Hodgkin^s disease
     Dosage: 40 MG/M2, EVERY 3 WEEKS (EVERY 21 DAYS, D1-5, }CYCLE 1)
  3. VINBLASTINE [Suspect]
     Active Substance: VINBLASTINE
     Indication: Hodgkin^s disease
     Dosage: 6 MG/M2, EVERY 3 WEEKS (EVERY 21 DAYS, D1, }CYCLE 1)
  4. BENDAMUSTINE [Suspect]
     Active Substance: BENDAMUSTINE
     Indication: Hodgkin^s disease
     Dosage: 120 MG/M2, EVERY 3 WEEKS (EVERY 21 DAYS, D1, }CYCLE 1)

REACTIONS (1)
  - Cardiogenic shock [Fatal]
